FAERS Safety Report 9297669 (Version 1)
Quarter: 2013Q2

REPORT INFORMATION
  Report Type: Spontaneous
  Country: US (occurrence: US)
  Receive Date: 20130520
  Receipt Date: 20130520
  Transmission Date: 20140414
  Serious: No
  Sender: FDA-Public Use
  Company Number: US-PFIZER INC-2013153886

PATIENT
  Age: 62 Year
  Sex: Female

DRUGS (9)
  1. XELJANZ [Suspect]
     Indication: RHEUMATOID ARTHRITIS
     Dosage: 5 MG, 2X/DAY
     Route: 048
     Dates: start: 20130226
  2. METHOTREXATE [Concomitant]
     Dosage: 2.5 MG, UNK
  3. PREDNISONE [Concomitant]
     Dosage: 20 MG, UNK
  4. LEUCOVORIN CALCIUM [Concomitant]
     Dosage: 5 MG, UNK
  5. ATENOLOL [Concomitant]
     Dosage: 25 MG, UNK
  6. FLAXSEED OIL [Concomitant]
     Dosage: 1000 MG, UNK
  7. FISH OIL [Concomitant]
     Dosage: 1000 MG, UNK
  8. VITAMIN D3 [Concomitant]
     Dosage: 1000 IU, UNK
  9. SIMPONI [Concomitant]
     Dosage: UNK

REACTIONS (1)
  - Rhinorrhoea [Unknown]
